FAERS Safety Report 7183639-2 (Version None)
Quarter: 2010Q4

REPORT INFORMATION
  Report Type: 
  Country: None (occurrence: None)
  Receive Date: 20101222
  Receipt Date: 20101217
  Transmission Date: 20110411
  Serious: Yes (Other)
  Sender: FDA-Public Use
  Company Number: DE-SANOFI-AVENTIS-2010SA076414

PATIENT
  Age: 57 Year
  Sex: Male

DRUGS (11)
  1. MULTAQ [Suspect]
     Indication: ATRIAL FIBRILLATION
     Route: 065
     Dates: start: 20101021, end: 20101101
  2. MULTAQ [Suspect]
     Route: 065
     Dates: start: 20101021, end: 20101101
  3. ALLOPURINOL [Concomitant]
     Route: 065
  4. AMLODIPINE [Concomitant]
     Route: 065
  5. CARBIMAZOLE [Concomitant]
     Route: 065
  6. FURO [Concomitant]
     Route: 065
  7. EZETIMIBE/SIMVASTATIN [Concomitant]
     Route: 065
  8. MARCUMAR [Concomitant]
     Route: 065
  9. METOPROLOL [Concomitant]
     Route: 065
  10. RAMIPRIL [Concomitant]
     Route: 065
  11. MOXONIDINE [Concomitant]
     Route: 065

REACTIONS (4)
  - BLOOD CREATININE INCREASED [None]
  - CONDITION AGGRAVATED [None]
  - CREATININE RENAL CLEARANCE DECREASED [None]
  - RENAL FAILURE [None]
